FAERS Safety Report 5483464-4 (Version None)
Quarter: 2007Q4

REPORT INFORMATION
  Report Type: 
  Country: None (occurrence: None)
  Receive Date: 20071012
  Receipt Date: 20071008
  Transmission Date: 20080405
  Serious: Yes (Hospitalization)
  Sender: FDA-Public Use
  Company Number: US-BRISTOL-MYERS SQUIBB COMPANY-13933528

PATIENT
  Age: 68 Year
  Sex: Female
  Weight: 91 kg

DRUGS (4)
  1. CYTOXAN [Suspect]
     Indication: BREAST CANCER METASTATIC
  2. PROCRIT [Suspect]
     Indication: ANAEMIA OF MALIGNANT DISEASE
     Route: 058
     Dates: start: 20070905
  3. ADRIAMYCIN PFS [Suspect]
     Indication: BREAST CANCER METASTATIC
  4. TAXOTERE [Suspect]
     Indication: BREAST CANCER METASTATIC

REACTIONS (1)
  - PNEUMONIA [None]
